FAERS Safety Report 6001659-8 (Version None)
Quarter: 2008Q4

REPORT INFORMATION
  Report Type: 
  Country: None (occurrence: None)
  Receive Date: 20081215
  Receipt Date: 20081209
  Transmission Date: 20090506
  Serious: Yes (Other)
  Sender: FDA-Public Use
  Company Number: US-B.I. PHARMACEUTICALS,INC./RIDGEFIELD-2008-BP-17792BP

PATIENT
  Age: 82 Year
  Sex: Male

DRUGS (7)
  1. FLOMAX [Suspect]
     Indication: BENIGN PROSTATIC HYPERPLASIA
     Dosage: .4MG
     Route: 048
     Dates: start: 20020101
  2. SEPTRA DS [Suspect]
     Indication: WOUND INFECTION
     Dates: start: 20081120
  3. AVODART [Concomitant]
     Indication: BENIGN PROSTATIC HYPERPLASIA
     Dates: start: 20060101
  4. PRAVACHOL [Concomitant]
     Indication: BLOOD CHOLESTEROL INCREASED
  5. HYDROCHLOROTHIAZIDE [Concomitant]
     Indication: HYPERTENSION
  6. ATENOLOL [Concomitant]
     Indication: HYPERTENSION
  7. ZYRTEC [Concomitant]
     Indication: HYPERSENSITIVITY

REACTIONS (3)
  - DRUG INEFFECTIVE [None]
  - SKIN CANCER [None]
  - WOUND INFECTION [None]
